FAERS Safety Report 5208690-0 (Version None)
Quarter: 2007Q1

REPORT INFORMATION
  Report Type: 
  Country: None (occurrence: None)
  Receive Date: 20070116
  Receipt Date: 20070110
  Transmission Date: 20070707
  Serious: Yes (Hospitalization)
  Sender: FDA-Public Use
  Company Number: US-JNJFOC-20070102392

PATIENT
  Age: 85 Year
  Sex: Female

DRUGS (2)
  1. TYLENOL [Suspect]
  2. TYLENOL [Suspect]
     Indication: ARTHRITIS

REACTIONS (1)
  - TRANSIENT ISCHAEMIC ATTACK [None]
